FAERS Safety Report 20864772 (Version 1)
Quarter: 2022Q2

REPORT INFORMATION
  Report Type: 
  Country: None (occurrence: None)
  Receive Date: 20220524
  Receipt Date: 20220524
  Transmission Date: 20220721
  Serious: Yes (Other)
  Sender: FDA-Public Use
  Company Number: None

PATIENT
  Age: 53 Year
  Sex: Male

DRUGS (1)
  1. MOXIFLOXACIN [Suspect]
     Active Substance: MOXIFLOXACIN

REACTIONS (6)
  - Iris transillumination defect [Recovered/Resolved]
  - Mydriasis [Recovered/Resolved]
  - Lenticular pigmentation [Recovered/Resolved]
  - Eye pain [Recovered/Resolved]
  - Corneal oedema [Recovered/Resolved]
  - Anterior chamber inflammation [Recovered/Resolved]
